FAERS Safety Report 7508018-7 (Version None)
Quarter: 2011Q2

REPORT INFORMATION
  Report Type: 
  Country: None (occurrence: None)
  Receive Date: 20110527
  Receipt Date: 20110519
  Transmission Date: 20111010
  Serious: Yes (Other)
  Sender: FDA-Public Use
  Company Number: US-US-EMD SERONO, INC.-7060738

PATIENT
  Sex: Female

DRUGS (1)
  1. REBIF [Suspect]
     Indication: MULTIPLE SCLEROSIS
     Route: 058
     Dates: start: 20100219

REACTIONS (5)
  - HAEMATOCRIT DECREASED [None]
  - NASOPHARYNGITIS [None]
  - INJECTION SITE ERYTHEMA [None]
  - HAEMOGLOBIN DECREASED [None]
  - KIDNEY INFECTION [None]
